FAERS Safety Report 9797793 (Version 1)
Quarter: 2014Q1

REPORT INFORMATION
  Report Type: Report from Study
  Country: JP (occurrence: JP)
  Receive Date: 20140106
  Receipt Date: 20140106
  Transmission Date: 20141002
  Serious: Yes (Other)
  Sender: FDA-Public Use
  Company Number: JP-ROCHE-1326721

PATIENT
  Age: 76 Year
  Sex: Female
  Weight: 39 kg

DRUGS (6)
  1. METHOXY POLYETHYLENE GLYCOL-EPOETIN BETA [Suspect]
     Indication: NEPHROGENIC ANAEMIA
     Route: 042
     Dates: start: 20120102, end: 20120509
  2. METHOXY POLYETHYLENE GLYCOL-EPOETIN BETA [Suspect]
     Indication: NEPHROGENIC ANAEMIA
     Route: 042
     Dates: start: 20120604
  3. TRANCOLON [Concomitant]
     Route: 048
  4. TAKEPRON [Concomitant]
     Route: 048
  5. BLOPRESS [Concomitant]
     Route: 048
  6. FOSRENOL [Concomitant]
     Route: 048

REACTIONS (1)
  - Polyp [Recovered/Resolved]
